FAERS Safety Report 10590048 (Version 1)
Quarter: 2014Q4

REPORT INFORMATION
  Report Type: Spontaneous
  Country: US (occurrence: None)
  Receive Date: 20141117
  Receipt Date: 20141117
  Transmission Date: 20150529
  Serious: Yes (Other)
  Sender: FDA-Public Use
  Company Number: None

PATIENT
  Age: 40 Year
  Sex: Male
  Weight: 81.65 kg

DRUGS (4)
  1. TEVEX [Concomitant]
  2. DEXTROAMPHETAMINE [Concomitant]
     Active Substance: DEXTROAMPHETAMINE
  3. METOCLOPROMIDE 10 [Suspect]
     Active Substance: METOCLOPRAMIDE
     Indication: OESOPHAGITIS
     Dosage: 90 TABLETS TID ORAL
     Route: 048
     Dates: start: 20141107, end: 20141112
  4. PREVACID [Concomitant]
     Active Substance: LANSOPRAZOLE

REACTIONS (2)
  - Contraindication to medical treatment [None]
  - Drug interaction [None]

NARRATIVE: CASE EVENT DATE: 20141107
